FAERS Safety Report 11373488 (Version 1)
Quarter: 2015Q3

REPORT INFORMATION
  Report Type: Spontaneous
  Country: ES (occurrence: None)
  Receive Date: 20150811
  Receipt Date: 20150811
  Transmission Date: 20151125
  Serious: Yes (Hospitalization)
  Sender: FDA-Public Use
  Company Number: POI0581201500012

PATIENT
  Age: 47 Year
  Sex: Male

DRUGS (1)
  1. AZASAN [Suspect]
     Active Substance: AZATHIOPRINE
     Indication: CROHN^S DISEASE
     Dates: start: 2012, end: 2013

REACTIONS (9)
  - Cholestasis [None]
  - Varices oesophageal [None]
  - Cell death [None]
  - Ascites [None]
  - Portal hypertension [None]
  - Thrombocytopenia [None]
  - Nodular regenerative hyperplasia [None]
  - Liver disorder [None]
  - Hepatosplenomegaly [None]

NARRATIVE: CASE EVENT DATE: 201303
